FAERS Safety Report 8406202-1 (Version None)
Quarter: 2012Q2

REPORT INFORMATION
  Report Type: 
  Country: None (occurrence: None)
  Receive Date: 20120518
  Receipt Date: 20120509
  Transmission Date: 20120825
  Serious: Yes (Other)
  Sender: FDA-Public Use
  Company Number: 2012SP011258

PATIENT
  Age: 53 Year
  Sex: Male

DRUGS (3)
  1. VICTRELIS (SCH-503034) [Suspect]
     Indication: HEPATITIS C
     Dosage: 800 MG, TID, PO
     Route: 048
     Dates: start: 20111111
  2. REBETOL [Suspect]
     Indication: HEPATITIS C
     Dosage: 1200 MG, QD, PO
     Route: 048
     Dates: start: 20111014
  3. PEGASYS [Suspect]
     Indication: HEPATITIS C
     Dosage: 180 MCG, QW, SC
     Route: 058
     Dates: start: 20111014

REACTIONS (3)
  - PULMONARY VALVE INCOMPETENCE [None]
  - PAIN IN EXTREMITY [None]
  - FLANK PAIN [None]
